FAERS Safety Report 18713493 (Version 1)
Quarter: 2021Q1

REPORT INFORMATION
  Report Type: Other
  Country: US (occurrence: US)
  Receive Date: 20210107
  Receipt Date: 20210107
  Transmission Date: 20210419
  Serious: Yes (Hospitalization, Other)
  Sender: FDA-Public Use
  Company Number: US-AMAG PHARMACEUTICALS, INC.-AMAG202004489

PATIENT
  Age: 24 Year
  Sex: Female
  Weight: 130.75 kg

DRUGS (1)
  1. MAKENA [Suspect]
     Active Substance: HYDROXYPROGESTERONE CAPROATE
     Indication: PREMATURE DELIVERY
     Route: 058
     Dates: start: 20200916, end: 20201228

REACTIONS (1)
  - Premature labour [Recovered/Resolved with Sequelae]

NARRATIVE: CASE EVENT DATE: 20201226
